FAERS Safety Report 4628362-0 (Version None)
Quarter: 2005Q2

REPORT INFORMATION
  Report Type: 
  Country: None (occurrence: None)
  Receive Date: 20050401
  Receipt Date: 20050114
  Transmission Date: 20051028
  Serious: No
  Sender: FDA-Public Use
  Company Number: 2005BI001435

PATIENT
  Age: 46 Year
  Sex: Male

DRUGS (1)
  1. NATALIZUMAB [Suspect]
     Indication: MULTIPLE SCLEROSIS
     Dates: start: 20050110

REACTIONS (2)
  - FEELING ABNORMAL [None]
  - MUSCLE RIGIDITY [None]
